FAERS Safety Report 12352515 (Version 1)
Quarter: 2016Q2

REPORT INFORMATION
  Report Type: Spontaneous
  Country: US (occurrence: US)
  Receive Date: 20160510
  Receipt Date: 20160510
  Transmission Date: 20160815
  Serious: No
  Sender: FDA-Public Use
  Company Number: US-MYLANLABS-2016M1013062

PATIENT
  Sex: Female

DRUGS (1)
  1. FELODIPINE EXTENDED-RELEASE TABLETS, USP [Suspect]
     Active Substance: FELODIPINE
     Dosage: UNK

REACTIONS (1)
  - Hypersensitivity [Unknown]
